FAERS Safety Report 10206003 (Version 6)
Quarter: 2016Q1

REPORT INFORMATION
  Report Type: Report from Study
  Country: CA (occurrence: CA)
  Receive Date: 20140530
  Receipt Date: 20160118
  Transmission Date: 20160525
  Serious: Yes (Other)
  Sender: FDA-Public Use
  Company Number: CA-ROCHE-1405563

PATIENT
  Age: 56 Year
  Sex: Female

DRUGS (15)
  1. ACTEMRA [Suspect]
     Active Substance: TOCILIZUMAB
     Indication: PRODUCT USED FOR UNKNOWN INDICATION
     Route: 065
     Dates: start: 20110601, end: 201208
  2. RITUXAN [Suspect]
     Active Substance: RITUXIMAB
     Indication: RHEUMATOID ARTHRITIS
     Dosage: PREVIOUS RITUXAN INFUSION: 08/JUL/2014
     Route: 042
     Dates: start: 20140624
  3. ENBREL [Suspect]
     Active Substance: ETANERCEPT
     Route: 065
     Dates: start: 201206
  4. PREDNISONE. [Concomitant]
     Active Substance: PREDNISONE
  5. ACTEMRA [Suspect]
     Active Substance: TOCILIZUMAB
     Route: 065
     Dates: end: 201208
  6. SALAZOPYRIN [Suspect]
     Active Substance: SULFASALAZINE
     Route: 065
     Dates: start: 201206, end: 201207
  7. METHOTREXATE [Suspect]
     Active Substance: METHOTREXATE
     Route: 065
     Dates: start: 201105, end: 201207
  8. METHOTREXATE [Suspect]
     Active Substance: METHOTREXATE
     Route: 065
     Dates: start: 1997, end: 2001
  9. OMEGA (UNK INGREDIENTS) [Concomitant]
  10. LEUCOVORIN. [Concomitant]
     Active Substance: LEUCOVORIN
  11. ENBREL [Suspect]
     Active Substance: ETANERCEPT
     Dosage: UNKNOWN RE-START DATE
     Route: 065
     Dates: start: 201010, end: 201105
  12. SALAZOPYRIN [Suspect]
     Active Substance: SULFASALAZINE
     Indication: PRODUCT USED FOR UNKNOWN INDICATION
     Route: 065
     Dates: start: 1992, end: 2001
  13. VITAMIN C [Concomitant]
     Active Substance: ASCORBIC ACID
  14. ENBREL [Suspect]
     Active Substance: ETANERCEPT
     Indication: PRODUCT USED FOR UNKNOWN INDICATION
     Route: 065
     Dates: start: 200503, end: 200907
  15. FOLIC ACID. [Suspect]
     Active Substance: FOLIC ACID
     Indication: PRODUCT USED FOR UNKNOWN INDICATION
     Route: 065

REACTIONS (7)
  - Drug ineffective [Unknown]
  - Malignant melanoma [Recovered/Resolved]
  - Heart rate decreased [Unknown]
  - Musculoskeletal stiffness [Not Recovered/Not Resolved]
  - Blood pressure diastolic decreased [Unknown]
  - Arthropathy [Unknown]
  - Abdominal discomfort [Recovering/Resolving]

NARRATIVE: CASE EVENT DATE: 201206
